FAERS Safety Report 6152043 (Version 2)
Quarter: 2018Q4

REPORT INFORMATION
  Report Type: Spontaneous
  Country: FR (occurrence: FR)
  Receive Date: 20061024
  Receipt Date: 20181116
  Transmission Date: 20190205
  Serious: Yes (Life-Threatening)
  Sender: FDA-Public Use
  Company Number: FR-JNJFOC-20061002844

PATIENT
  Age: 59 Year
  Sex: Female
  Weight: 45 kg

DRUGS (6)
  1. ZINNAT [Suspect]
     Active Substance: CEFUROXIME AXETIL
     Indication: LUNG DISORDER
     Route: 048
     Dates: start: 20060804, end: 20060817
  2. FLUINDIONE [Suspect]
     Active Substance: FLUINDIONE
     Indication: THROMBOSIS
     Route: 048
     Dates: start: 20060215, end: 20060804
  3. LEXOMIL [Concomitant]
     Active Substance: BROMAZEPAM
     Indication: PRODUCT USED FOR UNKNOWN INDICATION
     Route: 065
  4. SECTRAL [Concomitant]
     Active Substance: ACEBUTOLOL HYDROCHLORIDE
     Indication: PRODUCT USED FOR UNKNOWN INDICATION
     Route: 065
  5. DUROGESIC [Suspect]
     Active Substance: FENTANYL
     Indication: PRODUCT USED FOR UNKNOWN INDICATION
     Route: 062
     Dates: start: 20040601
  6. ZINNAT [Suspect]
     Active Substance: CEFUROXIME AXETIL
     Indication: LUNG INFECTION
     Route: 048
     Dates: start: 20060804, end: 20060817

REACTIONS (1)
  - Coagulation factor decreased [Recovered/Resolved]

NARRATIVE: CASE EVENT DATE: 20060807
